FAERS Safety Report 5055036-7 (Version None)
Quarter: 2006Q3

REPORT INFORMATION
  Report Type: 
  Country: None (occurrence: None)
  Receive Date: 20060719
  Receipt Date: 20060710
  Transmission Date: 20061208
  Serious: Yes (Other)
  Sender: FDA-Public Use
  Company Number: DE-JNJFOC-20060701643

PATIENT
  Sex: Female
  Weight: 51 kg

DRUGS (2)
  1. CILEST [Suspect]
     Indication: DRUG USE FOR UNKNOWN INDICATION
     Route: 048
  2. AMOXICILLIN ^AL^ [Suspect]
     Indication: ACUTE SINUSITIS
     Route: 048

REACTIONS (2)
  - HAEMOLYSIS [None]
  - LIVER FUNCTION TEST ABNORMAL [None]
